FAERS Safety Report 23924301 (Version 1)
Quarter: 2024Q2

REPORT INFORMATION
  Report Type: Spontaneous
  Country: US (occurrence: US)
  Receive Date: 20240531
  Receipt Date: 20240531
  Transmission Date: 20240715
  Serious: Yes (Hospitalization)
  Sender: FDA-Public Use
  Company Number: US-KEDRION-009288

PATIENT
  Age: 47 Year
  Sex: Female

DRUGS (9)
  1. HUMAN IMMUNOGLOBULIN G [Suspect]
     Active Substance: HUMAN IMMUNOGLOBULIN G
     Indication: Dermatomyositis
     Dosage: DOSAGE: 2 G/KG
     Route: 042
  2. HUMAN IMMUNOGLOBULIN G [Suspect]
     Active Substance: HUMAN IMMUNOGLOBULIN G
     Indication: Dermatomyositis
     Dosage: DOSAGE: 2 G/KG IVIG INFUSIONS AT 2 G/KG WERE RESTARTED AND GIVEN OVER A THREE-DAY DURATION. HER D...
     Route: 042
  3. CEFTRIAXONE [Concomitant]
     Active Substance: CEFTRIAXONE\CEFTRIAXONE SODIUM
     Indication: Inflammatory marker increased
     Route: 065
  4. VANCOMYCIN [Concomitant]
     Active Substance: VANCOMYCIN
     Indication: Inflammatory marker increased
     Route: 065
  5. AMPICILLIN [Concomitant]
     Active Substance: AMPICILLIN
     Indication: Inflammatory marker increased
     Route: 065
  6. ACYCLOVIR [Concomitant]
     Active Substance: ACYCLOVIR
     Indication: Inflammatory marker increased
     Route: 065
  7. PREDNISONE [Concomitant]
     Active Substance: PREDNISONE
     Indication: Dermatomyositis
     Route: 065
  8. MYCOPHENOLATE MOFETIL [Concomitant]
     Active Substance: MYCOPHENOLATE MOFETIL
     Indication: Dermatomyositis
     Route: 065
  9. RITUXIMAB [Concomitant]
     Active Substance: RITUXIMAB
     Indication: Dermatomyositis
     Route: 065

REACTIONS (3)
  - Meningitis aseptic [Recovered/Resolved]
  - Paraesthesia [Recovered/Resolved]
  - Off label use [Unknown]
